FAERS Safety Report 22832485 (Version 3)
Quarter: 2024Q1

REPORT INFORMATION
  Report Type: Spontaneous
  Country: US (occurrence: US)
  Receive Date: 20230817
  Receipt Date: 20240225
  Transmission Date: 20240410
  Serious: Yes (Death, Hospitalization)
  Sender: FDA-Public Use
  Company Number: US-TEVA-2023-US-2915993

PATIENT
  Age: 39 Year
  Sex: Female

DRUGS (8)
  1. FILGRASTIM [Suspect]
     Active Substance: FILGRASTIM
     Indication: Febrile neutropenia
     Route: 065
  2. GANCICLOVIR [Concomitant]
     Active Substance: GANCICLOVIR
     Indication: Cytomegalovirus infection reactivation
     Route: 065
  3. MERCAPTOPURINE [Suspect]
     Active Substance: MERCAPTOPURINE
     Indication: Colitis ulcerative
     Route: 065
  4. ALLOPURINOL [Suspect]
     Active Substance: ALLOPURINOL
     Indication: Colitis ulcerative
     Route: 065
  5. VANCOMYCIN [Concomitant]
     Active Substance: VANCOMYCIN
     Indication: Clostridium difficile infection
     Route: 048
  6. TIGECYCLINE [Concomitant]
     Active Substance: TIGECYCLINE
     Indication: Cholecystitis
     Route: 065
  7. DEXAMETHASONE [Suspect]
     Active Substance: DEXAMETHASONE
     Indication: Haemophagocytic lymphohistiocytosis
     Dosage: DOSAGE TEXT: HIGH DOSE
     Route: 042
  8. ETOPOSIDE [Suspect]
     Active Substance: ETOPOSIDE
     Indication: Haemophagocytic lymphohistiocytosis
     Route: 042

REACTIONS (5)
  - Haemophagocytic lymphohistiocytosis [Fatal]
  - Cytomegalovirus infection reactivation [Unknown]
  - Drug ineffective [Unknown]
  - Drug ineffective for unapproved indication [Fatal]
  - Off label use [Fatal]
